FAERS Safety Report 14877577 (Version 2)
Quarter: 2018Q2

REPORT INFORMATION
  Report Type: Spontaneous
  Country: US (occurrence: US)
  Receive Date: 20180510
  Receipt Date: 20180522
  Transmission Date: 20180711
  Serious: Yes (Hospitalization)
  Sender: FDA-Public Use
  Company Number: US-ACTELION-A-US2018-171885

PATIENT
  Age: 24 Year
  Sex: Female
  Weight: 49.89 kg

DRUGS (4)
  1. LETAIRIS [Concomitant]
     Active Substance: AMBRISENTAN
  2. XARELTO [Concomitant]
     Active Substance: RIVAROXABAN
  3. VELETRI [Suspect]
     Active Substance: EPOPROSTENOL
     Indication: PULMONARY ARTERIAL HYPERTENSION
     Dosage: 34 NG/KG, PER MIN
     Route: 042
  4. REVATIO [Concomitant]
     Active Substance: SILDENAFIL CITRATE

REACTIONS (5)
  - Device related infection [Unknown]
  - Sepsis [Unknown]
  - Catheter site pain [Unknown]
  - Pyrexia [Unknown]
  - Catheter site swelling [Unknown]
